FAERS Safety Report 9275537 (Version 1)
Quarter: 2013Q2

REPORT INFORMATION
  Report Type: Spontaneous
  Country: US (occurrence: US)
  Receive Date: 20130507
  Receipt Date: 20130507
  Transmission Date: 20140414
  Serious: No
  Sender: FDA-Public Use
  Company Number: US-PFIZER INC-2013137425

PATIENT
  Age: 80 Year
  Sex: Female
  Weight: 73.47 kg

DRUGS (1)
  1. PREMARIN [Suspect]
     Indication: MENOPAUSAL SYMPTOMS
     Dosage: UNK
     Route: 048

REACTIONS (4)
  - Osteoporosis [Unknown]
  - Therapeutic response unexpected [Unknown]
  - Affect lability [Unknown]
  - Energy increased [Unknown]
